FAERS Safety Report 5774233-6 (Version None)
Quarter: 2008Q2

REPORT INFORMATION
  Report Type: 
  Country: None (occurrence: None)
  Receive Date: 20080616
  Receipt Date: 20080606
  Transmission Date: 20081010
  Serious: Yes (Other)
  Sender: FDA-Public Use
  Company Number: JP-TYCO HEALTHCARE/MALLINCKRODT-T200800842

PATIENT

DRUGS (3)
  1. OPTIRAY 300 [Suspect]
     Indication: COMPUTERISED TOMOGRAM ABDOMEN
     Dosage: 75 ML, SINGLE
     Route: 042
     Dates: start: 20080514, end: 20080514
  2. FERROUS FUMARATE [Concomitant]
     Indication: ANAEMIA
     Dosage: 1 CAPSULE
     Route: 048
     Dates: start: 20080511
  3. CEFCAPENE PIVOXIL HYDROCHLORIDE [Concomitant]
     Indication: POST PROCEDURAL BILE LEAK
     Dosage: 1TABLET, TID
     Route: 048
     Dates: start: 20080511, end: 20080515

REACTIONS (5)
  - ANAPHYLACTOID SHOCK [None]
  - HEADACHE [None]
  - HYPOAESTHESIA ORAL [None]
  - PHARYNGOLARYNGEAL DISCOMFORT [None]
  - TREMOR [None]
